FAERS Safety Report 19559606 (Version 5)
Quarter: 2023Q4

REPORT INFORMATION
  Report Type: Report from Study
  Country: FR (occurrence: FR)
  Receive Date: 20210715
  Receipt Date: 20231005
  Transmission Date: 20240109
  Serious: Yes (Life-Threatening, Hospitalization, Other)
  Sender: FDA-Public Use
  Company Number: FR-PFIZER INC-2021855996

PATIENT
  Age: 39 Year
  Sex: Female

DRUGS (6)
  1. FLUOROURACIL [Suspect]
     Active Substance: FLUOROURACIL
     Indication: Colorectal cancer metastatic
     Dosage: UNK, 2 CYCLICALS, PRESSURIZED INTRAPERITONEAL AEROSOL
     Route: 033
     Dates: start: 2021
  2. FLUOROURACIL [Suspect]
     Active Substance: FLUOROURACIL
     Indication: Metastases to peritoneum
  3. OXALIPLATIN [Suspect]
     Active Substance: OXALIPLATIN
     Indication: Colorectal cancer metastatic
     Dosage: UNK, 2 CYCLICALS, PRESSURIZED INTRAPERITONEAL AEROSOL
     Route: 033
     Dates: start: 2021
  4. OXALIPLATIN [Suspect]
     Active Substance: OXALIPLATIN
     Indication: Metastases to peritoneum
  5. PANITUMUMAB [Suspect]
     Active Substance: PANITUMUMAB
     Indication: Colorectal cancer metastatic
     Dosage: UNK, 2 CYCLICALS, PRESSURIZED INTRAPERITONEAL AEROSOL
     Route: 033
     Dates: start: 2021
  6. PANITUMUMAB [Suspect]
     Active Substance: PANITUMUMAB
     Indication: Metastases to peritoneum

REACTIONS (3)
  - Autoimmune haemolytic anaemia [Recovered/Resolved]
  - Acute kidney injury [Recovered/Resolved]
  - Thrombocytopenia [Recovered/Resolved]
